FAERS Safety Report 5289777-3 (Version None)
Quarter: 2007Q2

REPORT INFORMATION
  Report Type: 
  Country: None (occurrence: None)
  Receive Date: 20070406
  Receipt Date: 20070329
  Transmission Date: 20071010
  Serious: Yes (Death, Hospitalization, Other)
  Sender: FDA-Public Use
  Company Number: BR-ABBOTT-07P-020-0363644-00

PATIENT
  Age: 33 Year
  Sex: Female
  Weight: 100 kg

DRUGS (2)
  1. HUMIRA [Suspect]
     Indication: RHEUMATOID ARTHRITIS
     Route: 058
     Dates: start: 20060801, end: 20061101
  2. INSULIN [Concomitant]
     Indication: DIABETES MELLITUS
     Route: 058
     Dates: end: 20061223

REACTIONS (11)
  - ANGIOPATHY [None]
  - BACTERIAL SEPSIS [None]
  - DECUBITUS ULCER [None]
  - HYPOTENSION [None]
  - INFECTION [None]
  - LEUKOPENIA [None]
  - MULTI-ORGAN FAILURE [None]
  - NECROTISING FASCIITIS [None]
  - PURULENT DISCHARGE [None]
  - SKIN ODOUR ABNORMAL [None]
  - WOUND INFECTION PSEUDOMONAS [None]
